FAERS Safety Report 6400320-5 (Version None)
Quarter: 2009Q4

REPORT INFORMATION
  Report Type: 
  Country: None (occurrence: None)
  Receive Date: 20091014
  Receipt Date: 20090929
  Transmission Date: 20100525
  Serious: Yes (Death, Hospitalization, Other)
  Sender: FDA-Public Use
  Company Number: NL-GENENTECH-291227

PATIENT
  Age: 60 Year
  Sex: Female

DRUGS (7)
  1. MABTHERA [Suspect]
     Indication: EPSTEIN-BARR VIRUS ASSOCIATED LYMPHOPROLIFERATIVE DISORDER
     Dosage: 375 MG/M2, 1/WEEK
     Route: 065
  2. CELLCEPT [Suspect]
     Indication: PROPHYLAXIS AGAINST TRANSPLANT REJECTION
     Dosage: UNK
     Route: 065
  3. COTRIM [Suspect]
     Indication: INFECTION PROPHYLAXIS
     Dosage: 960 MG, QOD
     Route: 065
  4. PROGRAF [Suspect]
     Indication: PROPHYLAXIS AGAINST TRANSPLANT REJECTION
     Route: 065
  5. PREDNISOLONE [Suspect]
     Indication: PROPHYLAXIS AGAINST TRANSPLANT REJECTION
     Route: 065
  6. ACYCLOVIR [Concomitant]
     Indication: DRUG USE FOR UNKNOWN INDICATION
  7. VALACYCLOVIR HCL [Concomitant]
     Indication: DRUG USE FOR UNKNOWN INDICATION

REACTIONS (6)
  - ACTINOMYCOSIS [None]
  - APHTHOUS STOMATITIS [None]
  - ASPERGILLOSIS [None]
  - ESCHERICHIA INFECTION [None]
  - HYPOGAMMAGLOBULINAEMIA [None]
  - THERAPEUTIC AGENT TOXICITY [None]
